FAERS Safety Report 13076872 (Version 1)
Quarter: 2016Q4

REPORT INFORMATION
  Report Type: Spontaneous
  Country: JP (occurrence: JP)
  Receive Date: 20161230
  Receipt Date: 20161230
  Transmission Date: 20170207
  Serious: Yes (Other)
  Sender: FDA-Public Use
  Company Number: JP-PFIZER INC-2016600894

PATIENT

DRUGS (7)
  1. CYCLOPHOSPHAMIDE HYDRATE [Suspect]
     Active Substance: CYCLOPHOSPHAMIDE
     Indication: OSTEOSARCOMA
     Route: 041
  2. METHOTREXATE SODIUM. [Suspect]
     Active Substance: METHOTREXATE SODIUM
     Indication: OSTEOSARCOMA
     Route: 041
  3. CISPLATIN. [Suspect]
     Active Substance: CISPLATIN
     Indication: OSTEOSARCOMA
     Route: 041
  4. IFOSFAMIDE. [Suspect]
     Active Substance: IFOSFAMIDE
     Indication: OSTEOSARCOMA
     Route: 065
  5. ACTINOMYCIN D [Suspect]
     Active Substance: DACTINOMYCIN
     Indication: OSTEOSARCOMA
     Route: 065
  6. ETOPOSIDE. [Suspect]
     Active Substance: ETOPOSIDE
     Indication: OSTEOSARCOMA
     Route: 041
  7. ADRIACIN [Suspect]
     Active Substance: DOXORUBICIN HYDROCHLORIDE
     Indication: OSTEOSARCOMA
     Route: 041

REACTIONS (2)
  - Acute myeloid leukaemia [Unknown]
  - Second primary malignancy [Unknown]
